FAERS Safety Report 8812449 (Version 2)
Quarter: 2012Q4

REPORT INFORMATION
  Report Type: 
  Country: US (occurrence: US)
  Receive Date: 20120927
  Receipt Date: 20121203
  Transmission Date: 20130627
  Serious: Yes (Death, Hospitalization, Other)
  Sender: FDA-Public Use
  Company Number: US-ROCHE-1126629

PATIENT
  Age: 55 Year
  Sex: Female

DRUGS (6)
  1. AVASTIN [Suspect]
     Indication: BREAST CANCER FEMALE
     Dosage: 10 mg/kg
     Route: 042
     Dates: start: 20050922
  2. AVASTIN [Suspect]
     Indication: METASTASES TO LIVER
     Dosage: 10 mg/kg
     Route: 042
     Dates: start: 20051006
  3. AVASTIN [Suspect]
     Indication: METASTASES TO LUNG
     Dosage: 10 mg/kg
     Route: 042
     Dates: start: 20051020
  4. AVASTIN [Suspect]
     Dosage: 10 mg/kg
     Route: 042
     Dates: start: 20051101
  5. AVASTIN [Suspect]
     Dosage: 10 mg/kg
     Route: 042
     Dates: start: 20051117, end: 20051117
  6. ABRAXANE [Concomitant]
     Route: 065
     Dates: start: 20050921

REACTIONS (7)
  - Death [Fatal]
  - Neoplasm [Unknown]
  - Dyspnoea [Unknown]
  - Epistaxis [Unknown]
  - Hepatomegaly [Unknown]
  - Rash erythematous [Unknown]
  - Disease progression [Unknown]
